FAERS Safety Report 4596831-8 (Version None)
Quarter: 2005Q1

REPORT INFORMATION
  Report Type: 
  Country: None (occurrence: None)
  Receive Date: 20050228
  Receipt Date: 20050214
  Transmission Date: 20050727
  Serious: No
  Sender: FDA-Public Use
  Company Number: 2005CG00245

PATIENT
  Age: 33 Year
  Sex: Female
  Weight: 54 kg

DRUGS (1)
  1. RHINOCORT [Suspect]
     Indication: RHINITIS ALLERGIC
     Dosage: 128 UG PRN IN
     Route: 055
     Dates: start: 19990101, end: 20050126

REACTIONS (2)
  - ANGIONEUROTIC OEDEMA [None]
  - URTICARIA GENERALISED [None]
